FAERS Safety Report 6868432-X (Version None)
Quarter: 2010Q3

REPORT INFORMATION
  Report Type: 
  Country: None (occurrence: None)
  Receive Date: 20100722
  Receipt Date: 20080529
  Transmission Date: 20110219
  Serious: Yes (Other)
  Sender: FDA-Public Use
  Company Number: US-PFIZER INC-2008046738

PATIENT
  Sex: Female

DRUGS (1)
  1. CHANTIX [Suspect]

REACTIONS (4)
  - ABDOMINAL DISCOMFORT [None]
  - DEPRESSION [None]
  - NERVOUSNESS [None]
  - SUICIDAL IDEATION [None]
